FAERS Safety Report 16170906 (Version 1)
Quarter: 2019Q2

REPORT INFORMATION
  Report Type: Spontaneous
  Country: US (occurrence: US)
  Receive Date: 20190408
  Receipt Date: 20190408
  Transmission Date: 20190711
  Serious: Yes (Other)
  Sender: FDA-Public Use
  Company Number: US-ROCHE-2238659

PATIENT
  Sex: Female

DRUGS (1)
  1. AVASTIN [Suspect]
     Active Substance: BEVACIZUMAB
     Indication: MACULAR DEGENERATION
     Route: 065

REACTIONS (6)
  - Blindness [Unknown]
  - Product contamination microbial [Unknown]
  - Suspected transmission of an infectious agent via product [Unknown]
  - Vision blurred [Unknown]
  - Pain [Unknown]
  - Eye infection [Unknown]
